FAERS Safety Report 4709907-9 (Version None)
Quarter: 2005Q3

REPORT INFORMATION
  Report Type: 
  Country: None (occurrence: None)
  Receive Date: 20050708
  Receipt Date: 20050627
  Transmission Date: 20060218
  Serious: Yes (Hospitalization, Congenital Anomaly)
  Sender: FDA-Public Use
  Company Number: FR-SANOFI-SYNTHELABO-A02200501691

PATIENT
  Sex: Male
  Weight: 3.5 kg

DRUGS (6)
  1. STILNOX [Suspect]
     Indication: DYSTHYMIC DISORDER
     Dosage: UNK
     Route: 064
     Dates: start: 20020504, end: 20030118
  2. LAROXYL [Suspect]
     Indication: DYSTHYMIC DISORDER
     Dosage: UNK
     Route: 064
     Dates: start: 20020504, end: 20020601
  3. OXAZEPAM [Suspect]
     Indication: DYSTHYMIC DISORDER
     Dosage: UNK
     Route: 064
     Dates: start: 20020601, end: 20030118
  4. XANAX [Suspect]
     Indication: DYSTHYMIC DISORDER
     Dosage: UNK
     Route: 064
     Dates: start: 20020601, end: 20030118
  5. EFFEXOR [Suspect]
     Indication: DYSTHYMIC DISORDER
     Dosage: UNK
     Route: 064
     Dates: end: 20030118
  6. EUPHYTOSE [Concomitant]
     Indication: DYSTHYMIC DISORDER
     Dosage: UNK
     Route: 064
     Dates: start: 20020601, end: 20030118

REACTIONS (9)
  - ABNORMAL BEHAVIOUR [None]
  - CONGENITAL MUSCULOSKELETAL ANOMALY [None]
  - DRUG EXPOSURE DURING PREGNANCY [None]
  - EPILEPSY [None]
  - EPILEPSY CONGENITAL [None]
  - FACIAL DYSMORPHISM [None]
  - FOETAL GROWTH RETARDATION [None]
  - MULTIPLE CONGENITAL ABNORMALITIES [None]
  - PSYCHOMOTOR RETARDATION [None]
